FAERS Safety Report 16589671 (Version 1)
Quarter: 2019Q3

REPORT INFORMATION
  Report Type: Spontaneous
  Country: US (occurrence: US)
  Receive Date: 20190717
  Receipt Date: 20190717
  Transmission Date: 20191004
  Serious: Yes (Other)
  Sender: FDA-Public Use
  Company Number: None

PATIENT
  Age: 61 Year
  Sex: Male
  Weight: 151.2 kg

DRUGS (22)
  1. GLIPIZIDE. [Concomitant]
     Active Substance: GLIPIZIDE
  2. NEXIUM [Concomitant]
     Active Substance: ESOMEPRAZOLE MAGNESIUM
  3. TESTOSTERONE. [Concomitant]
     Active Substance: TESTOSTERONE
  4. ZOLOFT [Concomitant]
     Active Substance: SERTRALINE HYDROCHLORIDE
  5. CARDIZEM LA [Concomitant]
     Active Substance: DILTIAZEM HYDROCHLORIDE
  6. METFORMIN [Concomitant]
     Active Substance: METFORMIN HYDROCHLORIDE
  7. OXYCODONE [Concomitant]
     Active Substance: OXYCODONE
  8. PRADAXA [Concomitant]
     Active Substance: DABIGATRAN ETEXILATE MESYLATE
  9. COZAAR [Concomitant]
     Active Substance: LOSARTAN POTASSIUM
  10. GABAPENTIN. [Concomitant]
     Active Substance: GABAPENTIN
  11. ZYRTREC [Concomitant]
  12. IMATINIB. [Suspect]
     Active Substance: IMATINIB MESYLATE
     Indication: CHRONIC MYELOID LEUKAEMIA
     Route: 048
     Dates: start: 20190206, end: 20190717
  13. CYCLOBENZAPRINE. [Concomitant]
     Active Substance: CYCLOBENZAPRINE
  14. FISH OIL [Concomitant]
     Active Substance: FISH OIL
  15. LASIX [Concomitant]
     Active Substance: FUROSEMIDE
  16. LIDODERM [Concomitant]
     Active Substance: LIDOCAINE
  17. LIPITOR [Concomitant]
     Active Substance: ATORVASTATIN CALCIUM
  18. TRAMADOL. [Concomitant]
     Active Substance: TRAMADOL
  19. DIGOXIN. [Concomitant]
     Active Substance: DIGOXIN
  20. SYNTHROID [Concomitant]
     Active Substance: LEVOTHYROXINE SODIUM
  21. SINGULAIR [Concomitant]
     Active Substance: MONTELUKAST SODIUM
  22. VITAMIN D3 [Concomitant]
     Active Substance: CHOLECALCIFEROL

REACTIONS (1)
  - Dyspnoea [None]

NARRATIVE: CASE EVENT DATE: 20190717
